FAERS Safety Report 24191599 (Version 1)
Quarter: 2024Q3

REPORT INFORMATION
  Report Type: Spontaneous
  Country: US (occurrence: US)
  Receive Date: 20240808
  Receipt Date: 20240808
  Transmission Date: 20241017
  Serious: Yes (Other)
  Sender: AUROBINDO
  Company Number: US-AUROBINDO-AUR-APL-2024-039149

PATIENT
  Age: 71 Year
  Sex: Male

DRUGS (5)
  1. LEUPROLIDE [Suspect]
     Active Substance: LEUPROLIDE
     Indication: Hormone-refractory prostate cancer
     Dosage: UNK
     Route: 065
  2. ABIRATERONE [Suspect]
     Active Substance: ABIRATERONE
     Indication: Hormone-refractory prostate cancer
     Dosage: UNK
     Route: 065
  3. GALLIUM OXODOTREOTIDE GA-68 [Suspect]
     Active Substance: GALLIUM OXODOTREOTIDE GA-68
     Indication: Pancreatic neuroendocrine tumour
     Dosage: UNK
     Route: 065
  4. GALLIUM OXODOTREOTIDE GA-68 [Suspect]
     Active Substance: GALLIUM OXODOTREOTIDE GA-68
     Indication: Hormone-refractory prostate cancer
  5. LANREOTIDE [Suspect]
     Active Substance: LANREOTIDE
     Indication: Pancreatic neuroendocrine tumour
     Dosage: UNK
     Route: 065

REACTIONS (1)
  - Drug ineffective [Unknown]
